FAERS Safety Report 16760724 (Version 2)
Quarter: 2019Q4

REPORT INFORMATION
  Report Type: Spontaneous
  Country: NL (occurrence: NL)
  Receive Date: 20190830
  Receipt Date: 20191213
  Transmission Date: 20200122
  Serious: Yes (Hospitalization, Other)
  Sender: FDA-Public Use
  Company Number: NL-ABBVIE-19K-114-2905750-00

PATIENT
  Age: 48 Year
  Sex: Female

DRUGS (8)
  1. LUCRIN [Suspect]
     Active Substance: LEUPROLIDE ACETATE
     Dosage: THIRD LUCRIN DEPOT 3.75
     Route: 065
     Dates: start: 20181204, end: 20181204
  2. LIVIAL [Concomitant]
     Active Substance: TIBOLONE
     Indication: HOT FLUSH
     Dosage: ADD-BACK THERAPY
  3. LUCRIN [Suspect]
     Active Substance: LEUPROLIDE ACETATE
     Indication: UTERINE LEIOMYOMA
     Dosage: FIRST LUCRIN DEPOT 3.75
     Route: 065
     Dates: start: 20181011, end: 20181011
  4. METFORMIN [Concomitant]
     Active Substance: METFORMIN HYDROCHLORIDE
     Indication: PRODUCT USED FOR UNKNOWN INDICATION
  5. LIVIAL [Concomitant]
     Active Substance: TIBOLONE
     Indication: NIGHT SWEATS
  6. FERROFUMARAAT [Concomitant]
     Indication: ANAEMIA
  7. LUCRIN [Suspect]
     Active Substance: LEUPROLIDE ACETATE
     Dosage: SECOND LUCRIN DEPOT 3.75
     Route: 065
     Dates: start: 20181108, end: 20181108
  8. GLIMEPIRIDE. [Concomitant]
     Active Substance: GLIMEPIRIDE
     Indication: PRODUCT USED FOR UNKNOWN INDICATION

REACTIONS (35)
  - Palpitations [Unknown]
  - Pain in extremity [Unknown]
  - Sleep disorder [Unknown]
  - Weight decreased [Unknown]
  - Syncope [Not Recovered/Not Resolved]
  - Peripheral coldness [Unknown]
  - Depressed mood [Unknown]
  - Pharyngeal inflammation [Unknown]
  - Night sweats [Not Recovered/Not Resolved]
  - Facial paralysis [Recovered/Resolved]
  - Headache [Unknown]
  - Urinary tract infection [Unknown]
  - Paraesthesia [Recovered/Resolved]
  - Eyelid ptosis [Recovered/Resolved]
  - Diabetes mellitus [Unknown]
  - Emotional disorder [Unknown]
  - Menorrhagia [Recovered/Resolved]
  - Tremor [Unknown]
  - Hypoglycaemia [Unknown]
  - Night sweats [Unknown]
  - Visual impairment [Unknown]
  - Fungal infection [Unknown]
  - Toothache [Unknown]
  - Loose tooth [Unknown]
  - Palpitations [Recovered/Resolved]
  - Sensory disturbance [Unknown]
  - Hypoaesthesia [Unknown]
  - Syncope [Unknown]
  - Hyperglycaemia [Unknown]
  - Pharyngitis [Unknown]
  - Pyrexia [Unknown]
  - Gastrointestinal inflammation [Unknown]
  - Hot flush [Unknown]
  - Hyperventilation [Unknown]
  - Diabetic neuropathy [Unknown]

NARRATIVE: CASE EVENT DATE: 20181204
